FAERS Safety Report 21323532 (Version 1)
Quarter: 2022Q3

REPORT INFORMATION
  Report Type: Report from Study
  Country: FR (occurrence: FR)
  Receive Date: 20220912
  Receipt Date: 20220912
  Transmission Date: 20221027
  Serious: Yes (Other)
  Sender: FDA-Public Use
  Company Number: FR-ABBVIE-22K-056-4534411-00

PATIENT
  Age: 69 Year
  Sex: Female

DRUGS (2)
  1. CARBIDOPA\LEVODOPA [Suspect]
     Active Substance: CARBIDOPA\LEVODOPA
     Indication: Parkinson^s disease
     Route: 050
     Dates: start: 201905
  2. CARBIDOPA\LEVODOPA [Suspect]
     Active Substance: CARBIDOPA\LEVODOPA

REACTIONS (4)
  - Akinesia [Unknown]
  - Dysarthria [Unknown]
  - Motor dysfunction [Unknown]
  - Constipation [Unknown]

NARRATIVE: CASE EVENT DATE: 20220907
